FAERS Safety Report 12394476 (Version 2)
Quarter: 2016Q2

REPORT INFORMATION
  Report Type: Spontaneous
  Country: US (occurrence: US)
  Receive Date: 20160523
  Receipt Date: 20160607
  Transmission Date: 20160815
  Serious: No
  Sender: FDA-Public Use
  Company Number: US-BAYER-2016-095170

PATIENT
  Age: 79 Year
  Sex: Male
  Weight: 77.9 kg

DRUGS (4)
  1. TAMSULOSIN [Concomitant]
     Active Substance: TAMSULOSIN
  2. SIMVASTATIN. [Concomitant]
     Active Substance: SIMVASTATIN
  3. MIRALAX [Suspect]
     Active Substance: POLYETHYLENE GLYCOL 3350
     Indication: CONSTIPATION
     Dosage: 2 TEASPOONS, QD
     Route: 048
     Dates: start: 20160307
  4. NEXIUM [Concomitant]
     Active Substance: ESOMEPRAZOLE MAGNESIUM

REACTIONS (8)
  - Product use issue [None]
  - Drug ineffective [None]
  - Diarrhoea [Recovered/Resolved]
  - Circumstance or information capable of leading to medication error [None]
  - Product use issue [None]
  - Intentional product use issue [None]
  - Diarrhoea [Recovered/Resolved]
  - Flatulence [Not Recovered/Not Resolved]

NARRATIVE: CASE EVENT DATE: 201603
